FAERS Safety Report 24970025 (Version 1)
Quarter: 2025Q1

REPORT INFORMATION
  Report Type: Spontaneous
  Country: IL (occurrence: IL)
  Receive Date: 20250214
  Receipt Date: 20250214
  Transmission Date: 20250409
  Serious: Yes (Other)
  Sender: BAYER HEALTHCARE PHARMACEUTICALS INC.
  Company Number: IL-BAYER-2025A017730

PATIENT
  Age: 40 Year
  Sex: Male

DRUGS (2)
  1. KERENDIA [Suspect]
     Active Substance: FINERENONE
     Dates: start: 202403
  2. KERENDIA [Suspect]
     Active Substance: FINERENONE
     Dates: start: 202412

REACTIONS (4)
  - Acute kidney injury [None]
  - Blood potassium increased [None]
  - Blood creatinine increased [None]
  - Glomerular filtration rate decreased [Recovering/Resolving]

NARRATIVE: CASE EVENT DATE: 20241201
